FAERS Safety Report 6848295-9 (Version None)
Quarter: 2010Q3

REPORT INFORMATION
  Report Type: 
  Country: None (occurrence: None)
  Receive Date: 20100716
  Receipt Date: 20100710
  Transmission Date: 20110219
  Serious: Yes (Other)
  Sender: FDA-Public Use
  Company Number: US-ROCHE-703638

PATIENT
  Sex: Female
  Weight: 64.9 kg

DRUGS (2)
  1. PEGASYS [Suspect]
     Indication: HEPATITIS C
     Dosage: FORM: PREFILLLED SYRINGE
     Route: 058
     Dates: start: 20100416
  2. RIBAVIRIN [Suspect]
     Indication: HEPATITIS C
     Dosage: DIVIDED DOSES
     Route: 048
     Dates: start: 20100416

REACTIONS (4)
  - ASTHMA [None]
  - BRONCHIAL HYPERREACTIVITY [None]
  - CHEST PAIN [None]
  - COUGH [None]
